FAERS Safety Report 16014262 (Version 11)
Quarter: 2021Q3

REPORT INFORMATION
  Report Type: Report from Study
  Country: BR (occurrence: BR)
  Receive Date: 20190227
  Receipt Date: 20210930
  Transmission Date: 20211014
  Serious: Yes (Hospitalization, Other)
  Sender: FDA-Public Use
  Company Number: BR-SEATTLE GENETICS-2019SGN00425

PATIENT
  Age: 20 Year
  Sex: Male
  Weight: 115 kg

DRUGS (17)
  1. LEVOTHYROXINE. [Concomitant]
     Active Substance: LEVOTHYROXINE
     Dosage: UNK
     Route: 065
  2. ALLOPURINOL. [Concomitant]
     Active Substance: ALLOPURINOL
     Dosage: UNK
     Route: 065
  3. PURAN [Concomitant]
     Active Substance: LEVOTHYROXINE SODIUM
     Dosage: 150 MILLIGRAM
     Route: 048
  4. ZOLPIDEM [Concomitant]
     Active Substance: ZOLPIDEM TARTRATE
     Dosage: UNK
     Route: 065
  5. MECLIN [Concomitant]
     Route: 065
  6. FOLIC ACID. [Concomitant]
     Active Substance: FOLIC ACID
     Dosage: UNK
     Route: 065
  7. BRENTUXIMAB VEDOTIN [Suspect]
     Active Substance: BRENTUXIMAB VEDOTIN
     Indication: HODGKIN^S DISEASE
     Dosage: 200 MILLIGRAM
     Route: 042
     Dates: start: 20190110
  8. MULTIVITAMINS [Concomitant]
     Active Substance: VITAMINS
     Dosage: UNK
     Route: 065
  9. OSCILLOCOCCINUM [Concomitant]
     Active Substance: CAIRINA MOSCHATA HEART/LIVER AUTOLYSATE
     Indication: ANTIVIRAL PROPHYLAXIS
     Dosage: UNK UNK, Q2WEEKS
     Route: 065
     Dates: start: 201905
  10. PURAN [Concomitant]
     Active Substance: LEVOTHYROXINE SODIUM
     Dosage: 25 MILLIGRAM
     Route: 048
  11. NAUSEDRON [Concomitant]
     Active Substance: ONDANSETRON HYDROCHLORIDE
     Indication: ILLNESS
     Dosage: UNK
     Route: 065
  12. BRENTUXIMAB VEDOTIN [Suspect]
     Active Substance: BRENTUXIMAB VEDOTIN
     Dosage: 150 MILLIGRAM
     Route: 042
  13. BACTRIM [Concomitant]
     Active Substance: SULFAMETHOXAZOLE\TRIMETHOPRIM
     Dosage: UNK
  14. PURAN [Concomitant]
     Active Substance: LEVOTHYROXINE SODIUM
     Indication: HYPOTHYROIDISM
     Dosage: 112 MICROGRAM
     Route: 048
  15. SERTRALINE [Concomitant]
     Active Substance: SERTRALINE HYDROCHLORIDE
     Dosage: UNK
     Route: 065
  16. VONAU [Concomitant]
     Active Substance: ONDANSETRON HYDROCHLORIDE
     Dosage: UNK
  17. ACICLOVIR [Concomitant]
     Active Substance: ACYCLOVIR
     Dosage: UNK
     Route: 065

REACTIONS (28)
  - Flatulence [Recovered/Resolved]
  - Vomiting [Recovered/Resolved]
  - Pyrexia [Recovered/Resolved]
  - Decreased appetite [Recovered/Resolved]
  - Renal impairment [Recovered/Resolved]
  - Dysuria [Recovered/Resolved]
  - Hepatic pain [Recovered/Resolved]
  - Pollakiuria [Recovered/Resolved]
  - Pruritus [Recovered/Resolved]
  - Constipation [Recovered/Resolved]
  - Rash macular [Recovered/Resolved]
  - Weight decreased [Recovered/Resolved]
  - Frequent bowel movements [Recovered/Resolved]
  - Illness [Recovered/Resolved]
  - Candida infection [Recovered/Resolved]
  - Gastrointestinal bacterial infection [Recovered/Resolved]
  - Eating disorder [Recovered/Resolved]
  - Gastrointestinal disorder [Recovered/Resolved]
  - Depression [Recovered/Resolved]
  - Nasopharyngitis [Recovered/Resolved]
  - Alopecia [Recovered/Resolved]
  - Viral infection [Recovered/Resolved]
  - Panic disorder [Recovered/Resolved]
  - Dehydration [Recovered/Resolved]
  - Diarrhoea [Recovered/Resolved]
  - Insomnia [Recovered/Resolved]
  - Gastrooesophageal reflux disease [Recovered/Resolved]
  - Nausea [Recovered/Resolved]

NARRATIVE: CASE EVENT DATE: 2018
